FAERS Safety Report 4402245-3 (Version None)
Quarter: 2004Q3

REPORT INFORMATION
  Report Type: 
  Country: None (occurrence: None)
  Receive Date: 20040716
  Receipt Date: 20040712
  Transmission Date: 20050211
  Serious: Yes (Life-Threatening, Hospitalization)
  Sender: FDA-Public Use
  Company Number: DEWYE589518FEB04

PATIENT
  Age: 72 Year
  Sex: Female

DRUGS (11)
  1. TAZOBAC (PIPERACILLIN/TAZOBACTAM, INJECTION) [Suspect]
     Indication: INTESTINAL PERFORATION
     Dosage: 4.5 G 3X PER 1 DAY INTRAVENOUS
     Route: 042
     Dates: start: 20040205, end: 20040215
  2. TAZOBAC (PIPERACILLIN/TAZOBACTAM, INJECTION) [Suspect]
     Indication: PERITONITIS
     Dosage: 4.5 G 3X PER 1 DAY INTRAVENOUS
     Route: 042
     Dates: start: 20040205, end: 20040215
  3. CIPROFLOXACIN [Suspect]
     Indication: INTESTINAL PERFORATION
     Dosage: 400 MG 2X PER 1 DAY INTRAVENOUS
     Route: 042
     Dates: start: 20040205, end: 20040215
  4. CIPROFLOXACIN [Suspect]
     Indication: PERITONITIS
     Dosage: 400 MG 2X PER 1 DAY INTRAVENOUS
     Route: 042
     Dates: start: 20040205, end: 20040215
  5. LASIX [Concomitant]
  6. ENOXAPARIN SODIUM [Concomitant]
  7. PROPOFOL [Concomitant]
  8. OMEPRAZOLE [Concomitant]
  9. NOREPINEPHRINE BITARTRATE [Concomitant]
  10. DOBUTAMINE [Concomitant]
  11. ACTRAPID HUMAN (INSULIN HUMAN) [Concomitant]

REACTIONS (5)
  - BETA HAEMOLYTIC STREPTOCOCCAL INFECTION [None]
  - BLOOD FIBRINOGEN INCREASED [None]
  - C-REACTIVE PROTEIN INCREASED [None]
  - PNEUMONIA KLEBSIELLA [None]
  - WHITE BLOOD CELL COUNT INCREASED [None]
